FAERS Safety Report 9401019 (Version 4)
Quarter: 2013Q4

REPORT INFORMATION
  Report Type: Spontaneous
  Country: US (occurrence: US)
  Receive Date: 20130715
  Receipt Date: 20131122
  Transmission Date: 20140711
  Serious: Yes (Death, Hospitalization)
  Sender: FDA-Public Use
  Company Number: US-INCYTE CORPORATION-2013IN001497

PATIENT
  Age: 59 Year
  Sex: Male
  Weight: 80.3 kg

DRUGS (6)
  1. JAKAFI [Suspect]
     Indication: MYELOFIBROSIS
     Dosage: 10 MG, BID
     Route: 048
     Dates: start: 20120715
  2. JAKAFI [Suspect]
     Dosage: NOT SPECIFIED
     Route: 048
     Dates: start: 20130430
  3. CELEXA [Concomitant]
     Indication: DEPRESSION
     Dosage: 40 MG, EVERY MORNING
     Route: 048
  4. COMPAZINE [Concomitant]
     Indication: NAUSEA
     Dosage: 10 MG, EVERY 6 HOURS AS NEEDED
     Route: 048
  5. COMPAZINE [Concomitant]
     Indication: VOMITING
  6. DILAUDID [Concomitant]
     Indication: PAIN
     Dosage: 1-3 TABLETS, EVERY 3 HOURS AS NEEDED FOR PAIN
     Route: 048

REACTIONS (6)
  - Death [Fatal]
  - Leukocytosis [Unknown]
  - Fatigue [Unknown]
  - Bone pain [Unknown]
  - Anaemia [Unknown]
  - Vomiting [Unknown]
